FAERS Safety Report 9609300 (Version 1)
Quarter: 2013Q4

REPORT INFORMATION
  Report Type: Spontaneous
  Country: US (occurrence: None)
  Receive Date: 20131007
  Receipt Date: 20131007
  Transmission Date: 20140711
  Serious: No
  Sender: FDA-Public Use
  Company Number: None

PATIENT
  Age: 63 Year
  Sex: Female

DRUGS (9)
  1. TARCEVA [Suspect]
     Indication: LUNG NEOPLASM MALIGNANT
     Route: 048
     Dates: start: 201307
  2. METOPROLOL [Concomitant]
  3. ZOLPIDEM [Concomitant]
  4. PREDNISONE [Concomitant]
  5. LOMOTIL [Concomitant]
  6. ZOMETA [Concomitant]
  7. AMLODIPINE [Concomitant]
  8. PLAQUENIL [Concomitant]
  9. PROTONIX [Concomitant]

REACTIONS (2)
  - Diarrhoea [None]
  - Drug dose omission [None]
